FAERS Safety Report 16040952 (Version 1)
Quarter: 2019Q2

REPORT INFORMATION
  Report Type: Spontaneous
  Country: US (occurrence: US)
  Receive Date: 20190305
  Receipt Date: 20190305
  Transmission Date: 20190711
  Serious: Yes (Disabling)
  Sender: FDA-Public Use
  Company Number: None

PATIENT
  Age: 55 Year
  Sex: Female
  Weight: 76.5 kg

DRUGS (2)
  1. FIRDAPSE [Suspect]
     Active Substance: AMIFAMPRIDINE
     Indication: MYASTHENIC SYNDROME
     Dosage: ?          QUANTITY:1 TABLET(S);OTHER FREQUENCY:AS DIRECTED;?
     Route: 048
     Dates: start: 20190207, end: 20190213
  2. FIRDAPSE [Suspect]
     Active Substance: AMIFAMPRIDINE
     Indication: MYASTHENIC SYNDROME
     Dosage: ?          QUANTITY:1 TABLET(S);OTHER FREQUENCY:AS DIRECTED;?
     Route: 048
     Dates: start: 20190214

REACTIONS (7)
  - Drug ineffective [None]
  - Condition aggravated [None]
  - Headache [None]
  - Product substitution issue [None]
  - Product quality issue [None]
  - Dysphagia [None]
  - Myasthenic syndrome [None]

NARRATIVE: CASE EVENT DATE: 20190214
